FAERS Safety Report 10200835 (Version 1)
Quarter: 2014Q2

REPORT INFORMATION
  Report Type: Spontaneous
  Country: US (occurrence: US)
  Receive Date: 20140528
  Receipt Date: 20140528
  Transmission Date: 20141212
  Serious: Yes (Other)
  Sender: FDA-Public Use
  Company Number: US-ELI_LILLY_AND_COMPANY-US201405007810

PATIENT
  Age: 75 Year
  Sex: Female

DRUGS (2)
  1. ALIMTA [Suspect]
     Indication: PRODUCT USED FOR UNKNOWN INDICATION
     Dosage: 500 MG/KG, UNKNOWN
     Route: 065
  2. CARBOPLATIN [Concomitant]
     Dosage: UNK, UNKNOWN
     Route: 065

REACTIONS (2)
  - Angioedema [Unknown]
  - Off label use [Unknown]
